FAERS Safety Report 19995871 (Version 2)
Quarter: 2022Q1

REPORT INFORMATION
  Report Type: Report from Study
  Country: US (occurrence: US)
  Receive Date: 20211025
  Receipt Date: 20220211
  Transmission Date: 20220424
  Serious: Yes (Hospitalization)
  Sender: FDA-Public Use
  Company Number: US-ABBVIE-21P-163-4120672-00

PATIENT
  Age: 85 Year
  Sex: Male

DRUGS (10)
  1. VENETOCLAX [Suspect]
     Active Substance: VENETOCLAX
     Indication: Follicular lymphoma
     Dosage: DAYS 2 - 14 OF EACH CYCLE; MOST RECENT DOSE: 07 OCT 2021
     Route: 048
     Dates: start: 20210814
  2. IBRUTINIB [Suspect]
     Active Substance: IBRUTINIB
     Indication: Follicular lymphoma
     Dosage: DAYS 1 - 14 OF EACH CYCLE; MOST RECENT DOSE: 07 OCT 2021
     Route: 048
     Dates: start: 20210813
  3. OBINUTUZUMAB [Concomitant]
     Active Substance: OBINUTUZUMAB
     Indication: Follicular lymphoma
     Dosage: DAYS 1 - 2 OF EACH CYCLE; MOST RECENT DOSE: 25 SEP 2021
     Route: 042
     Dates: start: 20210813
  4. PREDNISONE [Concomitant]
     Active Substance: PREDNISONE
     Indication: Follicular lymphoma
     Dosage: DAYS 1 - 7 OF EACH CYCLE; MOST RECENT DOSE: 30 SEP 2021
     Route: 048
     Dates: start: 20210813
  5. LENALIDOMIDE [Concomitant]
     Active Substance: LENALIDOMIDE
     Indication: Follicular lymphoma
     Dosage: DAYS 1 - 14 OF EACH CYCLE; MOST RECENT DOSE: 07 OCT 2021
     Route: 048
     Dates: start: 20210813
  6. DOXYCYCLINE [Concomitant]
     Active Substance: DOXYCYCLINE
     Indication: Cellulitis
     Dates: start: 20211005
  7. NEULASTA [Concomitant]
     Active Substance: PEGFILGRASTIM
     Indication: Product used for unknown indication
     Dosage: DAY 8
     Route: 058
     Dates: start: 20210813
  8. BACTRIM [Concomitant]
     Active Substance: SULFAMETHOXAZOLE\TRIMETHOPRIM
     Indication: Product used for unknown indication
     Dosage: 800/160 MG, MWF
     Route: 048
     Dates: start: 20210813
  9. VANCOMYCIN [Concomitant]
     Active Substance: VANCOMYCIN
     Indication: Product used for unknown indication
     Dates: start: 20211007
  10. ZOSYN [Concomitant]
     Active Substance: PIPERACILLIN SODIUM\TAZOBACTAM SODIUM
     Indication: Product used for unknown indication
     Dates: start: 20211007

REACTIONS (1)
  - Soft tissue infection [Recovered/Resolved]

NARRATIVE: CASE EVENT DATE: 20211007
